FAERS Safety Report 7006823-7 (Version None)
Quarter: 2010Q3

REPORT INFORMATION
  Report Type: 
  Country: None (occurrence: None)
  Receive Date: 20100922
  Receipt Date: 20100914
  Transmission Date: 20110219
  Serious: No
  Sender: FDA-Public Use
  Company Number: US-BIOGENIDEC-2010BI032436

PATIENT
  Age: 52 Year
  Sex: Female

DRUGS (3)
  1. TYSABRI [Suspect]
     Indication: MULTIPLE SCLEROSIS
     Route: 042
     Dates: start: 20060701
  2. TYSABRI [Suspect]
     Route: 042
     Dates: end: 20100909
  3. TYSABRI [Suspect]
     Route: 042
     Dates: start: 20100909

REACTIONS (1)
  - BLOOD TEST ABNORMAL [None]
